FAERS Safety Report 4412645-3 (Version None)
Quarter: 2004Q2

REPORT INFORMATION
  Report Type: 
  Country: None (occurrence: None)
  Receive Date: 20040630
  Receipt Date: 20040304
  Transmission Date: 20050107
  Serious: No
  Sender: FDA-Public Use
  Company Number: 04P-163-0252264-00

PATIENT
  Age: 53 Year
  Sex: Female

DRUGS (11)
  1. HUMIRA [Suspect]
     Indication: RHEUMATOID ARTHRITIS
     Dosage: 40 MG, 1 IN 2 WK, SUBCUTANEOUS
     Route: 058
     Dates: start: 20030724
  2. PREDNISONE [Concomitant]
  3. METHOTREXATE [Concomitant]
  4. MORPHINE SULFATE [Concomitant]
  5. CELECOXIB [Concomitant]
  6. CALCIUM [Concomitant]
  7. TEMAZEPAM [Concomitant]
  8. AMITRIPTYLINE HYDROCHLORIDE [Concomitant]
  9. CITALOPRAM HYDROBROMIDE [Concomitant]
  10. LEVOTHYROXINE SODIUM [Concomitant]
  11. MEDROXYPROGESTERONE ACETATE [Concomitant]

REACTIONS (1)
  - INFECTION [None]
